FAERS Safety Report 5989383-9 (Version None)
Quarter: 2008Q4

REPORT INFORMATION
  Report Type: 
  Country: None (occurrence: None)
  Receive Date: 20081210
  Receipt Date: 20081128
  Transmission Date: 20090506
  Serious: Yes (Hospitalization)
  Sender: FDA-Public Use
  Company Number: HK-BRISTOL-MYERS SQUIBB COMPANY-14424915

PATIENT
  Age: 53 Year
  Sex: Female

DRUGS (17)
  1. ABATACEPT [Suspect]
     Indication: SYSTEMIC LUPUS ERYTHEMATOSUS
     Dosage: 1 DOSAGE FORM = 250 (UNITS NOT CLEAR).
     Route: 042
     Dates: start: 20081031, end: 20081031
  2. BLINDED: PLACEBO [Suspect]
     Indication: SYSTEMIC LUPUS ERYTHEMATOSUS
     Route: 042
     Dates: start: 20081031
  3. MYCOPHENOLATE MOFETIL [Concomitant]
     Dosage: STARTED ON 04SEP08-10SEP08,1000MG,QD,PO. 11SEP08-16SEP08,1500MG,QD,PO.
     Route: 048
     Dates: start: 20080917
  4. PREDNISOLONE [Concomitant]
     Indication: LUPUS NEPHRITIS
     Dosage: 15JUL-25JUL08,02AUG-25AUG08 26AUG-30OCT08,31OCT-06NOV08 07NOV-13NOV08,14NOV-22NOV08 25NOV08-CONT.
     Route: 048
     Dates: start: 20080715
  5. FRUSEMIDE [Concomitant]
     Indication: SYSTEMIC LUPUS ERYTHEMATOSUS
     Dosage: 08JUL-12JUL08,26JUL08,27JUL08 28JUL-31JUL08,01AUG-03SEP08 17SEP-06NOV08,07NOV-25NOV08 25NOV08-CON
     Route: 048
     Dates: start: 20080708
  6. POTASSIUM CHLORIDE [Concomitant]
     Indication: PROPHYLAXIS
     Dosage: STARTED ON 12JUL08-14JUL08, 1200MG, QD, PO.16JUL08-22NOV08, 600MG, QD, PO.
     Route: 048
     Dates: start: 20080712
  7. MULTI-VITAMIN [Concomitant]
     Indication: VITAMIN SUPPLEMENTATION
     Dosage: 2 DOSAGE FORM = 2 TABS
     Route: 048
     Dates: start: 20080712
  8. FAMOTIDINE [Concomitant]
     Indication: PROPHYLAXIS AGAINST GASTROINTESTINAL ULCER
     Route: 048
     Dates: start: 20080726
  9. SIMVASTATIN [Concomitant]
     Indication: HYPERCHOLESTEROLAEMIA
     Route: 048
     Dates: start: 20080726
  10. NIFEDIPINE [Concomitant]
     Indication: HYPERTENSION
     Dosage: 26JUL08-26JUL08, 20MG, QD, PO; 27JUL08-31JUL08, 20MG,QD,PO; 01AUG08-22NOV08, 20MG, QD, PO.
     Route: 048
     Dates: start: 20070726
  11. ASPIRIN [Concomitant]
     Indication: PROPHYLAXIS
     Route: 048
     Dates: start: 20080726
  12. LACTULOSE [Concomitant]
     Indication: CONSTIPATION
     Dosage: LACTULOSE LIQUID,27JUL08-29JUL08, 10ML, BID, PO. 30JUL08-CONT, 10 ML, PRN, PO.
     Route: 048
     Dates: start: 20080727
  13. CALCIUM CARBONATE [Concomitant]
     Indication: MINERAL SUPPLEMENTATION
     Dosage: STARTED FROM 12JUL08-25JUL08, 1250MG, PO. RESTARTED ON 31-JUL-2008.
     Route: 048
     Dates: start: 20080731
  14. FOLIC ACID [Concomitant]
     Indication: ANAEMIA
     Route: 048
     Dates: start: 20080731
  15. DOLOXENE [Concomitant]
     Indication: HERPES ZOSTER
     Route: 048
     Dates: start: 20080814
  16. PERINDOPRIL [Concomitant]
     Indication: SYSTEMIC LUPUS ERYTHEMATOSUS
     Dates: start: 20080801, end: 20081121
  17. GABAPENTIN [Concomitant]
     Dates: start: 20080917

REACTIONS (2)
  - ATRIOVENTRICULAR BLOCK SECOND DEGREE [None]
  - NEPHROTIC SYNDROME [None]
